FAERS Safety Report 10041266 (Version 2)
Quarter: 2014Q1

REPORT INFORMATION
  Report Type: Spontaneous
  Country: FR (occurrence: FR)
  Receive Date: 20140327
  Receipt Date: 20140327
  Transmission Date: 20141002
  Serious: Yes (Hospitalization, Other)
  Sender: FDA-Public Use
  Company Number: PHHY2014FR025260

PATIENT
  Age: 87 Year
  Sex: Male
  Weight: 56 kg

DRUGS (2)
  1. EXELON PATCH [Suspect]
     Indication: DEMENTIA ALZHEIMER^S TYPE
     Dosage: 4.6 MG/24 H
     Route: 062
     Dates: start: 20140210, end: 20140218
  2. RISPERDAL [Concomitant]
     Indication: DEMENTIA ALZHEIMER^S TYPE
     Dosage: FROM 0.5 TO 1 MG
     Route: 048
     Dates: start: 20140217

REACTIONS (4)
  - Restlessness [Recovering/Resolving]
  - Agitation [Recovering/Resolving]
  - Abnormal behaviour [Unknown]
  - Paradoxical drug reaction [Unknown]
